FAERS Safety Report 20034967 (Version 1)
Quarter: 2021Q4

REPORT INFORMATION
  Report Type: Report from Study
  Country: US (occurrence: US)
  Receive Date: 20211104
  Receipt Date: 20211104
  Transmission Date: 20220303
  Serious: Yes (Other)
  Sender: FDA-Public Use
  Company Number: US-ASTELLAS-2021US042000

PATIENT
  Age: 85 Year
  Sex: Male

DRUGS (2)
  1. ENZALUTAMIDE [Interacting]
     Active Substance: ENZALUTAMIDE
     Indication: Prostate cancer
     Route: 048
     Dates: start: 20211007
  2. QUETIAPINE [Interacting]
     Active Substance: QUETIAPINE
     Indication: Product used for unknown indication
     Dosage: UNK UNK, UNKNOWN FREQ.
     Route: 065

REACTIONS (4)
  - Hallucination [Not Recovered/Not Resolved]
  - Dementia [Unknown]
  - Blood pressure increased [Not Recovered/Not Resolved]
  - Drug interaction [Unknown]

NARRATIVE: CASE EVENT DATE: 20211028
